FAERS Safety Report 5996147-9 (Version None)
Quarter: 2008Q4

REPORT INFORMATION
  Report Type: 
  Country: None (occurrence: None)
  Receive Date: 20081212
  Receipt Date: 20081011
  Transmission Date: 20090506
  Serious: No
  Sender: FDA-Public Use
  Company Number: US-ABBOTT-08P-163-0481190-00

PATIENT
  Sex: Female

DRUGS (12)
  1. HUMIRA [Suspect]
     Indication: CROHN'S DISEASE
     Route: 058
     Dates: start: 20080901, end: 20080901
  2. HUMIRA [Suspect]
     Route: 058
  3. MERCAPTOPURINE [Concomitant]
     Indication: CROHN'S DISEASE
  4. MESALAMINE [Concomitant]
     Indication: DRUG USE FOR UNKNOWN INDICATION
  5. VENLAFAXINE HCL [Concomitant]
     Indication: DRUG USE FOR UNKNOWN INDICATION
     Route: 048
     Dates: end: 20081001
  6. VENLAFAXINE HCL [Concomitant]
     Route: 048
     Dates: start: 20081001
  7. ENTECORT [Concomitant]
     Indication: DRUG USE FOR UNKNOWN INDICATION
  8. JENUVIA [Concomitant]
     Indication: DRUG USE FOR UNKNOWN INDICATION
  9. PIOGLITAZONE [Concomitant]
     Indication: DRUG USE FOR UNKNOWN INDICATION
  10. TRAMADOL HYDROCHLORIDE [Concomitant]
     Indication: ARTHRALGIA
     Route: 048
     Dates: end: 20081001
  11. TRAMADOL HYDROCHLORIDE [Concomitant]
     Route: 048
     Dates: start: 20081001
  12. TOPIRAMATE [Concomitant]
     Indication: MIGRAINE

REACTIONS (2)
  - DIARRHOEA [None]
  - SEROTONIN SYNDROME [None]
